FAERS Safety Report 6999859-3 (Version None)
Quarter: 2010Q3

REPORT INFORMATION
  Report Type: 
  Country: None (occurrence: None)
  Receive Date: 20100920
  Receipt Date: 20070911
  Transmission Date: 20110219
  Serious: Yes (Hospitalization, Other)
  Sender: FDA-Public Use
  Company Number: US-ASTRAZENECA-2007UW03803

PATIENT
  Age: 239 Month
  Sex: Male
  Weight: 61.2 kg

DRUGS (25)
  1. SEROQUEL [Suspect]
     Indication: DEPRESSION
     Route: 048
     Dates: start: 20030101, end: 20040201
  2. SEROQUEL [Suspect]
     Indication: BIPOLAR DISORDER
     Route: 048
     Dates: start: 20030101, end: 20040201
  3. SEROQUEL [Suspect]
     Dosage: 25-500 MG AT NIGHT
     Route: 048
     Dates: start: 20040102, end: 20050812
  4. SEROQUEL [Suspect]
     Dosage: 25-500 MG AT NIGHT
     Route: 048
     Dates: start: 20040102, end: 20050812
  5. SEROQUEL [Suspect]
     Route: 048
     Dates: start: 20040201, end: 20050701
  6. SEROQUEL [Suspect]
     Route: 048
     Dates: start: 20040201, end: 20050701
  7. SEROQUEL [Suspect]
     Dosage: 25-500 MG
     Route: 048
     Dates: start: 20051101
  8. SEROQUEL [Suspect]
     Dosage: 25-500 MG
     Route: 048
     Dates: start: 20051101
  9. WELLBUTRIN [Concomitant]
     Indication: BIPOLAR DISORDER
     Dates: start: 20051001, end: 20051101
  10. WELLBUTRIN [Concomitant]
     Indication: DEPRESSION
     Dates: start: 20051001, end: 20051101
  11. WELLBUTRIN [Concomitant]
     Dates: start: 20051101, end: 20070101
  12. WELLBUTRIN [Concomitant]
     Dates: start: 20051101, end: 20070101
  13. WELLBUTRIN [Concomitant]
     Dosage: 100-300 MG DAILY
     Route: 048
     Dates: start: 20060513
  14. WELLBUTRIN [Concomitant]
     Dosage: 100-300 MG DAILY
     Route: 048
     Dates: start: 20060513
  15. AMBIEN [Concomitant]
     Dates: start: 20051101, end: 20070301
  16. AMBIEN [Concomitant]
     Route: 048
     Dates: start: 20060513
  17. LAMICTAL [Concomitant]
     Indication: BIPOLAR DISORDER
     Dates: start: 20040101, end: 20070301
  18. LAMICTAL [Concomitant]
     Indication: DEPRESSION
     Dates: start: 20040101, end: 20070301
  19. LAMICTAL [Concomitant]
     Dosage: 25-200 MG DAILY
     Route: 048
     Dates: start: 20040113
  20. LAMICTAL [Concomitant]
     Dosage: 25-200 MG DAILY
     Route: 048
     Dates: start: 20040113
  21. LISINOPRIL [Concomitant]
     Indication: HYPERTENSION
     Dates: start: 20040101, end: 20040201
  22. LISINOPRIL [Concomitant]
     Dosage: 5-10 MG DAILY
     Dates: start: 20040105
  23. LISINOPRIL [Concomitant]
     Dates: start: 20040201, end: 20060101
  24. ATENOLOL [Concomitant]
     Indication: HYPERTENSION
     Dosage: 25-50 MG DAILY
     Dates: start: 20040113
  25. REMERON [Concomitant]
     Dosage: 15-45 MG AT NIGHT
     Dates: start: 20040101

REACTIONS (4)
  - BIPOLAR DISORDER [None]
  - PANCREATITIS [None]
  - PANCREATITIS CHRONIC [None]
  - VOMITING [None]
